FAERS Safety Report 6220500-1 (Version None)
Quarter: 2009Q2

REPORT INFORMATION
  Report Type: 
  Country: None (occurrence: None)
  Receive Date: 20090610
  Receipt Date: 20081222
  Transmission Date: 20091009
  Serious: No
  Sender: FDA-Public Use
  Company Number: US-KINGPHARMUSA00001-K200801447

PATIENT
  Sex: Female

DRUGS (2)
  1. INTAL [Suspect]
     Dosage: UNK
     Dates: start: 19880101
  2. ALBUTEROL [Concomitant]
     Dosage: UNK

REACTIONS (2)
  - EXPIRED DRUG ADMINISTERED [None]
  - NO ADVERSE EVENT [None]
